FAERS Safety Report 19169434 (Version 1)
Quarter: 2021Q2

REPORT INFORMATION
  Report Type: Spontaneous
  Country: BR (occurrence: BR)
  Receive Date: 20210422
  Receipt Date: 20210422
  Transmission Date: 20210717
  Serious: Yes (Other)
  Sender: FDA-Public Use
  Company Number: BR-ALLERGAN-2110390US

PATIENT
  Sex: Male

DRUGS (3)
  1. LEPROSY MEDICATION [Concomitant]
     Indication: LEPROSY
  2. OZURDEX [Suspect]
     Active Substance: DEXAMETHASONE
     Indication: PRODUCT USED FOR UNKNOWN INDICATION
     Dosage: 0.7 MG, SINGLE
     Route: 031
     Dates: start: 20210208, end: 20210208
  3. PREDNISONE. [Concomitant]
     Active Substance: PREDNISONE
     Indication: UVEITIS
     Dosage: 40 MG

REACTIONS (7)
  - Choroidal detachment [Unknown]
  - Visual acuity reduced [Unknown]
  - Retinal detachment [Unknown]
  - Vitritis [Unknown]
  - Candida infection [Unknown]
  - Endophthalmitis [Not Recovered/Not Resolved]
  - Photophobia [Unknown]

NARRATIVE: CASE EVENT DATE: 20210223
